FAERS Safety Report 4799675-7 (Version None)
Quarter: 2005Q4

REPORT INFORMATION
  Report Type: 
  Country: None (occurrence: None)
  Receive Date: 20051013
  Receipt Date: 20050928
  Transmission Date: 20060501
  Serious: Yes (Other)
  Sender: FDA-Public Use
  Company Number: 2005136221

PATIENT
  Age: 59 Year
  Sex: Female

DRUGS (5)
  1. ZOLOFT [Suspect]
     Indication: ILL-DEFINED DISORDER
     Dosage: 50 MG (DAILY), ORAL
     Route: 048
  2. DIMENHYDRINATE [Concomitant]
  3. DULCOLAX [Concomitant]
  4. ALL OTHER THERAPEUTIC PRODUCTS [Concomitant]
  5. LEVOMEPROMAZINE (LEVOMEPROMAZINE) [Concomitant]

REACTIONS (2)
  - OPERATIVE HAEMORRHAGE [None]
  - POST PROCEDURAL HAEMORRHAGE [None]
